FAERS Safety Report 25061251 (Version 2)
Quarter: 2025Q1

REPORT INFORMATION
  Report Type: Report from Study
  Country: US (occurrence: US)
  Receive Date: 20250310
  Receipt Date: 20250320
  Transmission Date: 20250409
  Serious: Yes (Hospitalization)
  Sender: ABBVIE
  Company Number: US-ABBVIE-6164935

PATIENT
  Age: 51 Year
  Sex: Female

DRUGS (1)
  1. SKYRIZI [Suspect]
     Active Substance: RISANKIZUMAB-RZAA
     Indication: Colitis ulcerative
     Route: 058
     Dates: start: 20241206

REACTIONS (9)
  - Hospitalisation [Recovering/Resolving]
  - Heart rate increased [Recovering/Resolving]
  - Insomnia [Recovering/Resolving]
  - Colitis ulcerative [Recovering/Resolving]
  - Procedural nausea [Recovered/Resolved]
  - Procedural vomiting [Recovered/Resolved]
  - Visual impairment [Recovering/Resolving]
  - Musculoskeletal discomfort [Recovering/Resolving]
  - Dizziness [Recovering/Resolving]

NARRATIVE: CASE EVENT DATE: 20250101
